FAERS Safety Report 4494323-8 (Version None)
Quarter: 2004Q4

REPORT INFORMATION
  Report Type: 
  Country: None (occurrence: None)
  Receive Date: 20041105
  Receipt Date: 20041102
  Transmission Date: 20050328
  Serious: Yes (Hospitalization)
  Sender: FDA-Public Use
  Company Number: FR-GLAXOSMITHKLINE-B0350328A

PATIENT
  Age: 34 Year
  Sex: Male

DRUGS (2)
  1. AUGMENTIN '125' [Suspect]
     Route: 048
     Dates: start: 20040915, end: 20040916
  2. OFLOCET [Suspect]
     Route: 048
     Dates: start: 20040915, end: 20040916

REACTIONS (3)
  - ANGIONEUROTIC OEDEMA [None]
  - HYPOTENSION [None]
  - TACHYCARDIA [None]
